FAERS Safety Report 6054130-1 (Version None)
Quarter: 2009Q1

REPORT INFORMATION
  Report Type: 
  Country: None (occurrence: None)
  Receive Date: 20090127
  Receipt Date: 20090113
  Transmission Date: 20090719
  Serious: Yes (Hospitalization)
  Sender: FDA-Public Use
  Company Number: FR-ELI_LILLY_AND_COMPANY-FR200809006564

PATIENT
  Age: 62 Year
  Sex: Female
  Weight: 80 kg

DRUGS (5)
  1. FORTEO [Suspect]
     Indication: OSTEOPENIA
     Dosage: 20 UG, DAILY (1/D)
     Route: 058
     Dates: start: 20080501, end: 20080922
  2. FORTEO [Suspect]
     Dosage: 20 UG, DAILY (1/D)
     Route: 058
  3. TAHOR [Concomitant]
     Indication: HYPERCHOLESTEROLAEMIA
     Dosage: 10 MG, DAILY (1/D)
     Route: 048
     Dates: start: 20070501
  4. PRAZEPAM [Concomitant]
     Indication: ANXIETY
     Dosage: 2 D/F, DAILY (1/D)
     Route: 048
     Dates: start: 20080101
  5. DEBRIDAT [Concomitant]
     Dosage: 3 D/F, DAILY (1/D)
     Route: 048

REACTIONS (3)
  - ANKLE FRACTURE [None]
  - FALL [None]
  - JOINT INJURY [None]
